FAERS Safety Report 23854616 (Version 1)
Quarter: 2024Q2

REPORT INFORMATION
  Report Type: Spontaneous
  Country: US (occurrence: US)
  Receive Date: 20240514
  Receipt Date: 20240514
  Transmission Date: 20240715
  Serious: Yes (Other)
  Sender: FDA-Public Use
  Company Number: US-KARYOPHARM-2024KPT001052

PATIENT

DRUGS (2)
  1. XPOVIO [Suspect]
     Active Substance: SELINEXOR
     Indication: Myelofibrosis
     Dosage: 80 MG
     Route: 065
     Dates: start: 201911
  2. XPOVIO [Suspect]
     Active Substance: SELINEXOR
     Dosage: 40 MG
     Route: 065

REACTIONS (4)
  - Cardiac failure [Unknown]
  - Feeling abnormal [Unknown]
  - Decreased appetite [Unknown]
  - Weight decreased [Unknown]
